FAERS Safety Report 16981722 (Version 2)
Quarter: 2020Q1

REPORT INFORMATION
  Report Type: Spontaneous
  Country: FR (occurrence: FR)
  Receive Date: 20191101
  Receipt Date: 20200109
  Transmission Date: 20200409
  Serious: Yes (Life-Threatening)
  Sender: FDA-Public Use
  Company Number: FR-TEVA-2019-FR-1129965

PATIENT
  Age: 52 Year
  Sex: Female
  Weight: 68 kg

DRUGS (3)
  1. TRAMADOL (CHLORHYDRATE DE) [Suspect]
     Active Substance: TRAMADOL HYDROCHLORIDE
     Indication: TOXICITY TO VARIOUS AGENTS
     Route: 048
     Dates: start: 20191007, end: 20191007
  2. OXAZEPAM. [Suspect]
     Active Substance: OXAZEPAM
     Indication: TOXICITY TO VARIOUS AGENTS
     Dosage: UNSPECIFIED
     Route: 048
     Dates: start: 20191007, end: 20191007
  3. BROMAZEPAM [Suspect]
     Active Substance: BROMAZEPAM
     Indication: TOXICITY TO VARIOUS AGENTS
     Dosage: UNSPECIFIED
     Route: 048
     Dates: start: 20191007, end: 20191007

REACTIONS (2)
  - Coma [Recovered/Resolved]
  - Hypotension [Recovered/Resolved]

NARRATIVE: CASE EVENT DATE: 20191007
